FAERS Safety Report 25770603 (Version 1)
Quarter: 2025Q3

REPORT INFORMATION
  Report Type: Spontaneous
  Country: CN (occurrence: CN)
  Receive Date: 20250908
  Receipt Date: 20250908
  Transmission Date: 20251021
  Serious: Yes (Other)
  Sender: HISUN PHARMACEUTICALS USA INC
  Company Number: CN-Hisun Pharmaceuticals USA Inc.-000677

PATIENT
  Age: 51 Year
  Sex: Male
  Weight: 104 kg

DRUGS (3)
  1. TICAGRELOR [Suspect]
     Active Substance: TICAGRELOR
     Indication: Antiplatelet therapy
     Route: 048
     Dates: start: 20250811, end: 20250813
  2. OZAGREL [Concomitant]
     Active Substance: OZAGREL
     Indication: Cerebral infarction
     Dosage: CONCENTRATE FOR INJECTION
     Route: 042
     Dates: start: 20250811, end: 20250812
  3. OZAGREL [Concomitant]
     Active Substance: OZAGREL
     Indication: Cerebral infarction
     Dosage: CONCENTRATE FOR INJECTION
     Route: 042
     Dates: start: 20250813

REACTIONS (2)
  - Dyspnoea [Recovered/Resolved]
  - Hypoxia [Recovered/Resolved]

NARRATIVE: CASE EVENT DATE: 20250813
